FAERS Safety Report 4603740-4 (Version None)
Quarter: 2005Q1

REPORT INFORMATION
  Report Type: 
  Country: None (occurrence: None)
  Receive Date: 20050308
  Receipt Date: 20050308
  Transmission Date: 20050727
  Serious: Yes (Hospitalization)
  Sender: FDA-Public Use
  Company Number: None

PATIENT
  Age: 67 Year
  Sex: Male
  Weight: 70.6 kg

DRUGS (3)
  1. TRAZODONE HCL [Suspect]
  2. GABAPENTIN [Suspect]
  3. CLONAZEPAM [Suspect]

REACTIONS (1)
  - COORDINATION ABNORMAL [None]
